FAERS Safety Report 7336033-5 (Version None)
Quarter: 2011Q1

REPORT INFORMATION
  Report Type: 
  Country: None (occurrence: None)
  Receive Date: 20110307
  Receipt Date: 20110209
  Transmission Date: 20110831
  Serious: No
  Sender: FDA-Public Use
  Company Number: US-B.I. PHARMACEUTICALS,INC./RIDGEFIELD-2011-BP-03914BP

PATIENT
  Sex: Male

DRUGS (9)
  1. METOPROLOL [Concomitant]
     Indication: HYPERTENSION
     Dosage: 25 MG
     Route: 048
  2. METOPROLOL [Concomitant]
     Indication: ATRIAL FIBRILLATION
  3. DETROL [Concomitant]
     Indication: INCONTINENCE
     Dosage: 4 MG
     Route: 048
  4. PRADAXA [Suspect]
     Indication: ATRIAL FIBRILLATION
     Dosage: 300 MG
     Route: 048
     Dates: start: 20110126
  5. LISINOPRIL [Concomitant]
     Indication: ATRIAL FIBRILLATION
  6. FERROUS SULFATE TAB [Concomitant]
     Indication: ANAEMIA
     Dosage: 325 MG
     Route: 048
  7. TAMSULOSIN (GENERIC) [Concomitant]
     Indication: PROSTATIC DISORDER
     Dosage: 0.4 MG
     Route: 048
  8. BACLOFEN [Concomitant]
     Indication: MUSCLE DISORDER
     Dosage: 10 MG
     Route: 048
  9. LISINOPRIL [Concomitant]
     Indication: HYPERTENSION
     Dosage: 20 MG
     Route: 048

REACTIONS (1)
  - THERMAL BURN [None]
